FAERS Safety Report 7053172-7 (Version None)
Quarter: 2010Q4

REPORT INFORMATION
  Report Type: 
  Country: None (occurrence: None)
  Receive Date: 20101020
  Receipt Date: 20101008
  Transmission Date: 20110411
  Serious: Yes (Hospitalization)
  Sender: FDA-Public Use
  Company Number: ES-JNJFOC-20101003029

PATIENT
  Age: 45 Year
  Sex: Male
  Weight: 85 kg

DRUGS (8)
  1. REMICADE [Suspect]
     Indication: COLITIS ULCERATIVE
     Route: 042
  2. REMICADE [Suspect]
     Route: 042
  3. REMICADE [Suspect]
     Route: 042
  4. REMICADE [Suspect]
     Route: 042
  5. METHOTREXATE [Suspect]
     Indication: COLITIS ULCERATIVE
     Route: 030
  6. PREDNISONE [Suspect]
     Indication: COLITIS ULCERATIVE
     Dosage: TAPERED DOSE
     Route: 048
  7. PREDNISONE [Suspect]
     Route: 048
  8. CALCIUM [Concomitant]
     Indication: COLITIS ULCERATIVE
     Route: 048

REACTIONS (4)
  - ABDOMINAL PAIN [None]
  - DIARRHOEA [None]
  - PYREXIA [None]
  - RECTAL HAEMORRHAGE [None]
